FAERS Safety Report 17819481 (Version 3)
Quarter: 2020Q4

REPORT INFORMATION
  Report Type: Spontaneous
  Country: US (occurrence: US)
  Receive Date: 20200523
  Receipt Date: 20201124
  Transmission Date: 20210113
  Serious: No
  Sender: FDA-Public Use
  Company Number: US-CADILA HEALTHCARE LIMITED-US-ZYDUS-050078

PATIENT

DRUGS (7)
  1. NATURE^S SUNSHINE DIGESTIVE BITTERS [Concomitant]
     Indication: IRRITABLE BOWEL SYNDROME
     Dosage: UNK
  2. ECHINACEA [ECHINACEA PURPUREA] [Concomitant]
     Indication: PRODUCT USED FOR UNKNOWN INDICATION
     Dosage: UNK
  3. HEMP [Concomitant]
     Active Substance: HEMP
     Indication: HELICOBACTER INFECTION
     Dosage: UNK UNK, QD
  4. BOSENTAN 62.5 MG TABLETS [Suspect]
     Active Substance: BOSENTAN
     Indication: PULMONARY ARTERIAL HYPERTENSION
     Dosage: 62.5 MILLIGRAM, BID
     Route: 048
     Dates: start: 20190613
  5. NATURE^S SUNSHINE PDA SUPPLEMENT [Concomitant]
     Indication: IRRITABLE BOWEL SYNDROME
     Dosage: UNK
  6. BOSENTAN 62.5 MG TABLETS [Suspect]
     Active Substance: BOSENTAN
     Dosage: 62.5 MILLIGRAM, BID
     Route: 048
     Dates: start: 20190613
  7. AMLODIPINE [Suspect]
     Active Substance: AMLODIPINE BESYLATE
     Dosage: UNK
     Dates: end: 20200515

REACTIONS (10)
  - Blood pressure decreased [Recovered/Resolved]
  - Dyspnoea exertional [Recovered/Resolved]
  - Abdominal distension [Not Recovered/Not Resolved]
  - Hypotension [Recovered/Resolved]
  - Dizziness [Recovered/Resolved]
  - Flatulence [Not Recovered/Not Resolved]
  - Dyspnoea [Recovered/Resolved]
  - Product dose omission issue [Recovered/Resolved]
  - Neck injury [Not Recovered/Not Resolved]
  - Weight decreased [Recovered/Resolved]

NARRATIVE: CASE EVENT DATE: 202001
